FAERS Safety Report 12883340 (Version 2)
Quarter: 2016Q4

REPORT INFORMATION
  Report Type: Spontaneous
  Country: MY (occurrence: MY)
  Receive Date: 20161025
  Receipt Date: 20161102
  Transmission Date: 20170207
  Serious: Yes (Death, Life-Threatening, Hospitalization, Other)
  Sender: FDA-Public Use
  Company Number: MY-BAUSCH-BL-2016-026171

PATIENT
  Age: 22 Year
  Sex: Male

DRUGS (1)
  1. MESALAZINE [Suspect]
     Active Substance: MESALAMINE
     Indication: CROHN^S DISEASE
     Route: 065
     Dates: start: 2015

REACTIONS (6)
  - Acute respiratory distress syndrome [Fatal]
  - Respiratory failure [Fatal]
  - Septic shock [Unknown]
  - Coagulopathy [Not Recovered/Not Resolved]
  - Disseminated tuberculosis [Unknown]
  - Pulmonary haemorrhage [Unknown]
